FAERS Safety Report 15208286 (Version 2)
Quarter: 2018Q3

REPORT INFORMATION
  Report Type: Spontaneous
  Country: US (occurrence: US)
  Receive Date: 20180727
  Receipt Date: 20180925
  Transmission Date: 20181010
  Serious: Yes (Other)
  Sender: FDA-Public Use
  Company Number: US-BAYER-2018-141108

PATIENT
  Age: 29 Year
  Sex: Female
  Weight: 63.5 kg

DRUGS (2)
  1. SKYLA [Suspect]
     Active Substance: LEVONORGESTREL
     Dosage: 14 MCG/24HR, CONT
     Route: 015
     Dates: start: 201712, end: 20180725
  2. KYLEENA [Suspect]
     Active Substance: LEVONORGESTREL
     Dosage: 17.5 MCG/24HR, CONT
     Route: 015
     Dates: start: 20171114

REACTIONS (5)
  - Embedded device [None]
  - Constipation [None]
  - Embedded device [None]
  - Abdominal pain lower [None]
  - Abdominal distension [None]

NARRATIVE: CASE EVENT DATE: 20180724
